FAERS Safety Report 5068083-6 (Version None)
Quarter: 2006Q3

REPORT INFORMATION
  Report Type: 
  Country: None (occurrence: None)
  Receive Date: 20060731
  Receipt Date: 20060717
  Transmission Date: 20061208
  Serious: Yes (Disabling, Other)
  Sender: FDA-Public Use
  Company Number: 2006006639

PATIENT
  Age: 60 Year
  Sex: Female

DRUGS (4)
  1. BEXTRA [Suspect]
     Indication: MUSCULOSKELETAL DISORDER
     Dosage: 20 MG (1 IN 1 D),
     Dates: start: 20000101
  2. BEXTRA [Suspect]
     Indication: MYALGIA
     Dosage: 20 MG (1 IN 1 D),
     Dates: start: 20000101
  3. VIOXX [Suspect]
     Indication: MUSCULOSKELETAL DISORDER
     Dates: start: 20000101
  4. VIOXX [Suspect]
     Indication: PAIN
     Dates: start: 20000101

REACTIONS (24)
  - ACTIVITIES OF DAILY LIVING IMPAIRED [None]
  - ANHEDONIA [None]
  - APPETITE DISORDER [None]
  - ASTHENIA [None]
  - CARDIOVASCULAR DISORDER [None]
  - COORDINATION ABNORMAL [None]
  - DEPRESSION [None]
  - DISTURBANCE IN ATTENTION [None]
  - EMOTIONAL DISORDER [None]
  - FATIGUE [None]
  - FEELINGS OF WORTHLESSNESS [None]
  - GAIT DISTURBANCE [None]
  - HYPOAESTHESIA [None]
  - HYPOKINESIA [None]
  - IMPAIRED SELF-CARE [None]
  - MYOCARDIAL INFARCTION [None]
  - OEDEMA PERIPHERAL [None]
  - PAIN [None]
  - PSYCHOMOTOR RETARDATION [None]
  - SLEEP DISORDER [None]
  - SOCIAL PROBLEM [None]
  - SWELLING [None]
  - VENOUS OCCLUSION [None]
  - WEIGHT ABNORMAL [None]
